FAERS Safety Report 5972600-9 (Version None)
Quarter: 2008Q4

REPORT INFORMATION
  Report Type: 
  Country: None (occurrence: None)
  Receive Date: 20081201
  Receipt Date: 20081121
  Transmission Date: 20090506
  Serious: Yes (Hospitalization)
  Sender: FDA-Public Use
  Company Number: PT-JNJFOC-20081101920

PATIENT
  Sex: Male

DRUGS (4)
  1. RISPERDAL CONSTA [Suspect]
     Indication: DRUG USE FOR UNKNOWN INDICATION
     Route: 030
     Dates: start: 20081023
  2. RISPERIDONE [Concomitant]
     Route: 048
  3. LORENIN [Concomitant]
     Route: 065
  4. AKINETON [Concomitant]
     Route: 065
     Dates: end: 20081024

REACTIONS (3)
  - BACK PAIN [None]
  - DEEP VEIN THROMBOSIS [None]
  - VOMITING [None]
